FAERS Safety Report 8188792-X (Version None)
Quarter: 2012Q1

REPORT INFORMATION
  Report Type: 
  Country: None (occurrence: None)
  Receive Date: 20120306
  Receipt Date: 20120301
  Transmission Date: 20120608
  Serious: Yes (Death, Other)
  Sender: FDA-Public Use
  Company Number: AU-PFIZER INC-2012054396

PATIENT
  Age: 55 Year
  Sex: Male

DRUGS (3)
  1. ALCOHOL [Suspect]
     Dosage: UNK
  2. LYRICA [Suspect]
     Indication: PAIN
     Dosage: UNK
  3. LYRICA [Suspect]
     Indication: NEURALGIA

REACTIONS (1)
  - COMPLETED SUICIDE [None]
